FAERS Safety Report 11038994 (Version 5)
Quarter: 2015Q3

REPORT INFORMATION
  Report Type: Report from Study
  Country: CA (occurrence: CA)
  Receive Date: 20150416
  Receipt Date: 20150813
  Transmission Date: 20151125
  Serious: Yes (Hospitalization, Other)
  Sender: FDA-Public Use
  Company Number: PHHY2015CA033985

PATIENT
  Age: 67 Year
  Sex: Male

DRUGS (1)
  1. SANDOSTATIN LAR DEPOT [Suspect]
     Active Substance: OCTREOTIDE ACETATE
     Indication: LUNG NEOPLASM MALIGNANT
     Dosage: 30 MG, EVERY 28 DAYS/ EVERY 4 WEEKS
     Route: 030
     Dates: start: 20150217

REACTIONS (8)
  - Arthralgia [Unknown]
  - Metastases to central nervous system [Unknown]
  - Needle issue [Unknown]
  - Confusional state [Unknown]
  - Fall [Unknown]
  - Drug ineffective [Unknown]
  - Off label use [Unknown]
  - Musculoskeletal pain [Unknown]

NARRATIVE: CASE EVENT DATE: 20150320
